FAERS Safety Report 8515674-3 (Version None)
Quarter: 2012Q3

REPORT INFORMATION
  Report Type: 
  Country: None (occurrence: None)
  Receive Date: 20120717
  Receipt Date: 20120711
  Transmission Date: 20120928
  Serious: Yes (Hospitalization, Other)
  Sender: FDA-Public Use
  Company Number: PHHY2012VN060503

PATIENT
  Age: 65 Year
  Sex: Female
  Weight: 40 kg

DRUGS (6)
  1. ZOLEDRONOC ACID [Suspect]
     Indication: OSTEOPOROSIS
     Dosage: 5 MG (5MG/100ML), UNK
     Route: 042
     Dates: start: 20120710
  2. ARCOXIA [Concomitant]
     Indication: SPINAL PAIN
  3. OMEPRAZOLE [Concomitant]
     Dosage: 20 MG (1 TABLET BEFORE BREAK FAST), UNK
     Route: 048
     Dates: start: 20120701
  4. VITAMIN D [Concomitant]
     Dosage: 1 DF (2000UI), UNK
     Route: 048
     Dates: start: 20120701
  5. ARCOXIA [Concomitant]
     Indication: OSTEOPOROSIS
     Dosage: 90 MG (1 TABLET AFTER BREAKFAST), UNK
     Route: 048
     Dates: start: 20120701
  6. CELEBREX [Concomitant]
     Dosage: 200 MG, QD
     Route: 048
     Dates: start: 20120701

REACTIONS (1)
  - URINARY RETENTION [None]
